FAERS Safety Report 21261948 (Version 1)
Quarter: 2022Q3

REPORT INFORMATION
  Report Type: Spontaneous
  Country: DE (occurrence: DE)
  Receive Date: 20220827
  Receipt Date: 20220827
  Transmission Date: 20221027
  Serious: Yes (Other)
  Sender: FDA-Public Use
  Company Number: DE-NOVARTISPH-NVSC2022DE193222

PATIENT
  Age: 53 Year
  Sex: Male

DRUGS (2)
  1. IMATINIB [Suspect]
     Active Substance: IMATINIB
     Indication: Product used for unknown indication
     Dosage: UNK (0.14 UNITS IN INTERVAL/ WEEK)
     Route: 065
     Dates: start: 20150914, end: 20211231
  2. HYDROXYUREA [Suspect]
     Active Substance: HYDROXYUREA
     Indication: Chronic myeloid leukaemia
     Dosage: UNK  (0.14 UNITS IN INTERVAL/ WEEK)
     Route: 065
     Dates: start: 20150831, end: 20150914

REACTIONS (2)
  - Chronic myeloid leukaemia [Unknown]
  - Muscle spasms [Recovered/Resolved]

NARRATIVE: CASE EVENT DATE: 20150831
